FAERS Safety Report 19897256 (Version 1)
Quarter: 2021Q3

REPORT INFORMATION
  Report Type: Spontaneous
  Country: US (occurrence: US)
  Receive Date: 20210929
  Receipt Date: 20210929
  Transmission Date: 20211014
  Serious: No
  Sender: FDA-Public Use
  Company Number: US-OTSUKA-2021_008872

PATIENT
  Sex: Male

DRUGS (1)
  1. REXULTI [Suspect]
     Active Substance: BREXPIPRAZOLE
     Indication: AUTISM SPECTRUM DISORDER
     Dosage: 0.5 MG
     Route: 065
     Dates: start: 2018

REACTIONS (2)
  - Product use in unapproved indication [Unknown]
  - Insurance issue [Unknown]

NARRATIVE: CASE EVENT DATE: 2018
